FAERS Safety Report 6895110-3 (Version None)
Quarter: 2010Q3

REPORT INFORMATION
  Report Type: 
  Country: None (occurrence: None)
  Receive Date: 20100802
  Receipt Date: 20100720
  Transmission Date: 20110219
  Serious: Yes (Other)
  Sender: FDA-Public Use
  Company Number: GB-WATSON-2010-10123

PATIENT
  Age: 49 Year
  Sex: Female
  Weight: 71 kg

DRUGS (6)
  1. ALENDRONATE SODIUM (WATSON LABORATORIES) [Suspect]
     Indication: OSTEOPOROSIS PROPHYLAXIS
     Dosage: 70 MG, 1/WEEK
     Route: 048
     Dates: start: 20091101
  2. ADCAL                              /00056901/ [Concomitant]
     Indication: OSTEOPOROSIS PROPHYLAXIS
     Dosage: 2 DF, DAILY
     Route: 048
     Dates: start: 20091101
  3. AZATHIOPRINE [Concomitant]
     Indication: VASCULITIS
     Dosage: 100 MG, UNK
     Route: 048
     Dates: start: 20030101
  4. ENALAPRIL [Concomitant]
     Indication: HYPERTENSION
     Dosage: 5 MG, UNK
     Route: 048
     Dates: start: 20080101
  5. FLUOXETINE [Concomitant]
     Indication: DEPRESSION
     Dosage: 20 MG, UNK
     Route: 048
     Dates: start: 20000101
  6. PREDNISOLONE [Concomitant]
     Indication: VASCULITIS
     Dosage: 7 1/2 MG, UNK
     Route: 048
     Dates: start: 20030101

REACTIONS (2)
  - INJURY [None]
  - TENDON RUPTURE [None]
